FAERS Safety Report 5066712-4 (Version None)
Quarter: 2006Q3

REPORT INFORMATION
  Report Type: 
  Country: None (occurrence: None)
  Receive Date: 20060801
  Receipt Date: 20060725
  Transmission Date: 20061208
  Serious: Yes (Other)
  Sender: FDA-Public Use
  Company Number: ES-GLAXOSMITHKLINE-B0432774A

PATIENT
  Age: 82 Year
  Sex: Female
  Weight: 60 kg

DRUGS (11)
  1. REMIFENTANIL [Suspect]
     Route: 042
  2. DIGOXIN [Suspect]
     Dosage: .25MG SEE DOSAGE TEXT
     Route: 065
  3. FUROSEMIDE [Concomitant]
     Dosage: 40MG PER DAY
     Route: 065
  4. ENOXAPARIN SODIUM [Concomitant]
     Dosage: 40MG PER DAY
     Route: 065
  5. GLICLAZIDE [Concomitant]
     Dosage: 80MG TWICE PER DAY
     Route: 065
  6. POTASSIUM SALT [Concomitant]
     Route: 065
  7. COLLOID [Concomitant]
  8. OXYGEN [Concomitant]
     Route: 065
  9. ETOMIDATE [Concomitant]
     Route: 065
  10. NIMBEX [Concomitant]
     Route: 065
  11. SEVOFLURANE [Concomitant]
     Route: 065

REACTIONS (3)
  - BRADYCARDIA [None]
  - CARDIAC ARREST [None]
  - DRUG INTERACTION [None]
